FAERS Safety Report 7557142-1 (Version None)
Quarter: 2011Q2

REPORT INFORMATION
  Report Type: 
  Country: None (occurrence: None)
  Receive Date: 20110618
  Receipt Date: 20110618
  Transmission Date: 20111010
  Serious: Yes (Hospitalization)
  Sender: FDA-Public Use
  Company Number: None

PATIENT
  Sex: Female
  Weight: 46 kg

DRUGS (1)
  1. DABIGATRAN 150MG BOEHRINGER-INGELHEIM [Suspect]
     Indication: ATRIAL FIBRILLATION
     Dosage: 150MG Q12HR PO
     Route: 048

REACTIONS (5)
  - UPPER GASTROINTESTINAL HAEMORRHAGE [None]
  - HAEMOGLOBIN ABNORMAL [None]
  - HYPOTENSION [None]
  - MELAENA [None]
  - HAEMATOCRIT ABNORMAL [None]
